FAERS Safety Report 13016930 (Version 1)
Quarter: 2016Q4

REPORT INFORMATION
  Report Type: Spontaneous
  Country: US (occurrence: US)
  Receive Date: 20161209
  Receipt Date: 20161209
  Transmission Date: 20170207
  Serious: Yes (Hospitalization)
  Sender: FDA-Public Use
  Company Number: None

PATIENT
  Age: 56 Year
  Sex: Female
  Weight: 52.8 kg

DRUGS (7)
  1. SPIRONOLACTONE. [Concomitant]
     Active Substance: SPIRONOLACTONE
  2. FUROSEMIDE. [Concomitant]
     Active Substance: FUROSEMIDE
  3. COLACE [Concomitant]
     Active Substance: DOCUSATE SODIUM
  4. CARVEDILOL. [Concomitant]
     Active Substance: CARVEDILOL
  5. RISPERIDONE. [Concomitant]
     Active Substance: RISPERIDONE
  6. PRADAXA [Suspect]
     Active Substance: DABIGATRAN ETEXILATE MESYLATE
     Indication: PULMONARY EMBOLISM
     Route: 048
     Dates: start: 20161110, end: 20161207
  7. MORPHINE [Concomitant]
     Active Substance: MORPHINE

REACTIONS (2)
  - Abdominal pain [None]
  - Haematemesis [None]

NARRATIVE: CASE EVENT DATE: 20161207
